FAERS Safety Report 20596862 (Version 1)
Quarter: 2022Q1

REPORT INFORMATION
  Report Type: Report from Study
  Country: ES (occurrence: None)
  Receive Date: 20220315
  Receipt Date: 20220315
  Transmission Date: 20220423
  Serious: Yes (Hospitalization)
  Sender: FDA-Public Use
  Company Number: ES-ROCHE-3042836

PATIENT
  Age: 48 Year
  Sex: Male
  Weight: 97.1 kg

DRUGS (14)
  1. GLOFITAMAB [Suspect]
     Active Substance: GLOFITAMAB
     Indication: Non-Hodgkin^s lymphoma
     Dosage: DOSE LAST STUDY DRUG ADMIN PRIOR SAE/AE: 30 MG?START DATE OF MOST RECENT DOSE OF STUDY DRUG PRIOR TO
     Route: 042
     Dates: start: 20211111
  2. OBINUTUZUMAB [Suspect]
     Active Substance: OBINUTUZUMAB
     Indication: Non-Hodgkin^s lymphoma
     Dosage: DOSE LAST STUDY DRUG ADMIN PRIOR SAE/AE: 1000 MG?TOTAL VOLUME PRIOR SAE/AE 290 ML?START DATE OF MOST
     Route: 042
     Dates: start: 20211104
  3. POLATUZUMAB VEDOTIN [Suspect]
     Active Substance: POLATUZUMAB VEDOTIN
     Indication: Non-Hodgkin^s lymphoma
     Dosage: DOSE LAST STUDY DRUG ADMIN PRIOR SAE/AE: 177.12 MG?TOTAL VOLUME PRIOR SAE/AE: 100 ML?START DATE OF M
     Route: 042
     Dates: start: 20211105
  4. MEROPENEM [Concomitant]
     Active Substance: MEROPENEM
     Indication: Pyrexia
     Dates: start: 20220127, end: 20220131
  5. REMDESIVIR [Concomitant]
     Active Substance: REMDESIVIR
     Indication: Pyrexia
     Dates: start: 20220127, end: 20220201
  6. AMOXICILLIN [Concomitant]
     Active Substance: AMOXICILLIN
     Indication: COVID-19 pneumonia
     Dates: start: 20220302
  7. ATENOLOL [Concomitant]
     Active Substance: ATENOLOL
     Indication: Prophylaxis
  8. LOSARTAN [Concomitant]
     Active Substance: LOSARTAN
     Indication: Prophylaxis
  9. PAROXETINE [Concomitant]
     Active Substance: PAROXETINE
     Indication: Depression
  10. ZOLPIDEM [Concomitant]
     Active Substance: ZOLPIDEM TARTRATE
     Indication: Insomnia
  11. ACYCLOVIR [Concomitant]
     Active Substance: ACYCLOVIR
     Indication: Antiviral prophylaxis
     Dates: start: 20211104
  12. TRIMETHOPRIM [Concomitant]
     Active Substance: TRIMETHOPRIM
     Indication: Antibiotic prophylaxis
     Dates: start: 20211104
  13. SULFAMETHOXAZOLE [Concomitant]
     Active Substance: SULFAMETHOXAZOLE
     Indication: Antibiotic prophylaxis
     Dates: start: 20211104
  14. ALLOPURINOL [Concomitant]
     Active Substance: ALLOPURINOL
     Indication: Hyperuricaemia
     Dates: start: 20211104

REACTIONS (1)
  - COVID-19 pneumonia [Not Recovered/Not Resolved]

NARRATIVE: CASE EVENT DATE: 20220302
